FAERS Safety Report 6882005-4 (Version None)
Quarter: 2010Q3

REPORT INFORMATION
  Report Type: 
  Country: None (occurrence: None)
  Receive Date: 20100729
  Receipt Date: 20100720
  Transmission Date: 20110219
  Serious: Yes (Death)
  Sender: FDA-Public Use
  Company Number: JP-PFIZER INC-2010090689

PATIENT
  Age: 75 Year
  Sex: Male

DRUGS (7)
  1. ZITHROMAC SR [Suspect]
     Dosage: 2 G, 1X/DAY
     Route: 048
     Dates: start: 20100712, end: 20100712
  2. LOXONIN [Suspect]
     Dosage: 2 DF/DAY
     Route: 048
     Dates: start: 20100712
  3. TETRACYCLINE [Suspect]
     Dosage: UNK
     Route: 061
     Dates: start: 20100712
  4. FAMOTIDINE [Concomitant]
     Dosage: 20 MG, UNK
     Route: 048
  5. BETAMAC [Concomitant]
     Dosage: 100 MG, UNK
     Route: 048
  6. FLUVASTATIN [Concomitant]
     Dosage: 30 MG, UNK
     Route: 048
  7. MIYARISAN W [Concomitant]
     Route: 048

REACTIONS (1)
  - ASPHYXIA [None]
